FAERS Safety Report 5095515-X (Version None)
Quarter: 2006Q3

REPORT INFORMATION
  Report Type: 
  Country: None (occurrence: None)
  Receive Date: 20060831
  Receipt Date: 20060831
  Transmission Date: 20061208
  Serious: Yes (Life-Threatening, Hospitalization)
  Sender: FDA-Public Use
  Company Number: None

PATIENT
  Age: 51 Year
  Weight: 94 kg

DRUGS (7)
  1. HYDROCHLOROTHIAZIDE [Suspect]
     Indication: HYPERTENSION
     Dosage: 25 MG PO DAILY
     Route: 048
  2. SEROQUEL [Suspect]
     Indication: SCHIZOPHRENIA
     Dosage: 300 MG PO QHS
     Route: 048
  3. ATENOLOL [Concomitant]
  4. BENZTROPINE MESYLATE [Concomitant]
  5. LISINOPRIL [Concomitant]
  6. LOXAPINE [Concomitant]
  7. TEMAZEPAM [Concomitant]

REACTIONS (6)
  - CONVULSION [None]
  - FAECAL INCONTINENCE [None]
  - HYPONATRAEMIA [None]
  - POLYDIPSIA [None]
  - URINARY INCONTINENCE [None]
  - VOMITING [None]
